FAERS Safety Report 5360902-9 (Version None)
Quarter: 2007Q2

REPORT INFORMATION
  Report Type: 
  Country: None (occurrence: None)
  Receive Date: 20070618
  Receipt Date: 20070604
  Transmission Date: 20071010
  Serious: Yes (Hospitalization)
  Sender: FDA-Public Use
  Company Number: US-PFIZER INC-2007010583

PATIENT
  Sex: Female
  Weight: 54.4 kg

DRUGS (11)
  1. VFEND [Suspect]
     Indication: BRONCHOPULMONARY ASPERGILLOSIS
     Route: 048
  2. VFEND [Suspect]
     Indication: FUNGAL INFECTION
  3. ACCOLATE [Concomitant]
  4. LOVENOX [Concomitant]
  5. PROTONIX [Concomitant]
  6. LISINOPRIL [Concomitant]
  7. NORVASC [Concomitant]
  8. PLAVIX [Concomitant]
  9. LEVAQUIN [Concomitant]
  10. ASPIRIN [Concomitant]
  11. ADVAIR DISKUS 100/50 [Concomitant]

REACTIONS (7)
  - ASPERGILLOSIS [None]
  - ASTHMA [None]
  - DRUG INTOLERANCE [None]
  - DYSPNOEA [None]
  - HEART RATE IRREGULAR [None]
  - PNEUMONIA BACTERIAL [None]
  - RESPIRATORY FAILURE [None]
